FAERS Safety Report 14449312 (Version 1)
Quarter: 2018Q1

REPORT INFORMATION
  Report Type: Spontaneous
  Country: US (occurrence: US)
  Receive Date: 20180127
  Receipt Date: 20180127
  Transmission Date: 20180509
  Serious: No
  Sender: FDA-Public Use
  Company Number: US-009507513-1801USA000416

PATIENT
  Sex: Female
  Weight: 56.69 kg

DRUGS (2)
  1. NEXPLANON [Suspect]
     Active Substance: ETONOGESTREL
     Indication: CONTRACEPTION
     Dosage: 1 ROD UP TO  3 YEARS, IMPLANT LEFT
     Route: 059
     Dates: start: 20160216
  2. LITHIUM. [Concomitant]
     Active Substance: LITHIUM
     Dosage: 2 X DAILY

REACTIONS (3)
  - Metrorrhagia [Unknown]
  - Menstruation delayed [Recovered/Resolved]
  - Drug hypersensitivity [Unknown]
